FAERS Safety Report 9201299 (Version 2)
Quarter: 2013Q2

REPORT INFORMATION
  Report Type: Report from Study
  Country: BR (occurrence: BR)
  Receive Date: 20130401
  Receipt Date: 20130430
  Transmission Date: 20140414
  Serious: Yes (Other)
  Sender: FDA-Public Use
  Company Number: PHHY2013BR030768

PATIENT
  Sex: Female

DRUGS (6)
  1. DIOVAN HCT [Suspect]
     Indication: HYPERTENSION
     Dosage: 1 DF (VALS 160 MG, HYDR 12.5 MG), ONCE AT MORNING
  2. OMEPRAZOLE [Concomitant]
     Indication: ABDOMINAL DISCOMFORT
     Dosage: 1 DF(20MG), DAILY
     Route: 048
  3. OSTEOFORM//ALENDRONATE SODIUM [Concomitant]
     Indication: BONE DISORDER
     Dosage: 1 DF (70MG), QW
     Route: 048
  4. GLUCOSAMINE SULFATE COMPLEX//GLUCOSAMINE SULFATE SODIUM CHLORIDE [Concomitant]
     Indication: BONE DISORDER
     Dosage: 2 DF, DAILY
     Route: 048
  5. VIMOVO [Concomitant]
     Indication: ABDOMINAL DISCOMFORT
     Dosage: 1 DF, DAILY
     Route: 048
  6. VIMOVO [Concomitant]
     Indication: ANTIINFLAMMATORY THERAPY

REACTIONS (5)
  - Meniscus injury [Recovering/Resolving]
  - Fall [Recovering/Resolving]
  - Dengue fever [Not Recovered/Not Resolved]
  - Pain [Not Recovered/Not Resolved]
  - Blood cholesterol increased [Not Recovered/Not Resolved]
